FAERS Safety Report 24701337 (Version 1)
Quarter: 2024Q4

REPORT INFORMATION
  Report Type: Spontaneous
  Country: TR (occurrence: TR)
  Receive Date: 20241205
  Receipt Date: 20241205
  Transmission Date: 20250115
  Serious: Yes (Other)
  Sender: NOVO NORDISK
  Company Number: TR-NOVOPROD-1324540

PATIENT
  Age: 569 Month
  Sex: Female
  Weight: 103.5 kg

DRUGS (2)
  1. SAXENDA [Suspect]
     Active Substance: LIRAGLUTIDE
     Indication: Product used for unknown indication
     Dosage: 0.6 MG/ML
     Route: 058
  2. LEVOTHYROXINE SODIUM [Concomitant]
     Active Substance: LEVOTHYROXINE SODIUM
     Indication: Thyroid disorder
     Dosage: 150 ?G, QD

REACTIONS (4)
  - Hypersensitivity [Recovered/Resolved]
  - Syncope [Recovering/Resolving]
  - Oropharyngeal pain [Recovered/Resolved]
  - Pharyngeal swelling [Recovering/Resolving]
